FAERS Safety Report 22263302 (Version 1)
Quarter: 2023Q2

REPORT INFORMATION
  Report Type: Spontaneous
  Country: ES (occurrence: ES)
  Receive Date: 20230428
  Receipt Date: 20230428
  Transmission Date: 20230722
  Serious: Yes (Other)
  Sender: FDA-Public Use
  Company Number: None

PATIENT
  Age: 79 Year
  Sex: Female

DRUGS (8)
  1. AMOXICILLIN [Suspect]
     Active Substance: AMOXICILLIN
     Indication: Product used for unknown indication
     Dosage: UNK, TOTAL
     Route: 048
     Dates: start: 20230326, end: 20230326
  2. TORSEMIDE [Concomitant]
     Active Substance: TORSEMIDE
     Indication: Product used for unknown indication
     Dosage: 10 MG, Q24H (10 MG EFG TABLETS, 30 TABLETS)
     Route: 048
     Dates: start: 20220912
  3. CALCIUM CARBONATE [Concomitant]
     Active Substance: CALCIUM CARBONATE
     Indication: Product used for unknown indication
     Dosage: 1 DOSAGE FORM, Q12H (1.000 MG POWDER FOR ORAL SUSPENSION, 60 ENVELOPES)
     Route: 048
     Dates: start: 20230324
  4. DOXAZOSINA NEO CINFA [Concomitant]
     Indication: Product used for unknown indication
     Dosage: 4 MG, Q12H (EFG EXTENDED RELEASE 4 MG TABLETS, 28 TABLETS)
     Route: 048
     Dates: start: 20190520
  5. FEMARA [Concomitant]
     Active Substance: LETROZOLE
     Indication: Product used for unknown indication
     Dosage: 1 DOSAGE FORM, Q24H (30 TABLETS)
     Route: 048
     Dates: start: 20230301
  6. CAPTOPRIL CINFA [Concomitant]
     Indication: Product used for unknown indication
     Dosage: 50 MG, Q24H (EFG 50 MG TABLETS, 30 TABLETS)
     Route: 048
     Dates: start: 20120630
  7. INSULIN ASPART [Concomitant]
     Active Substance: INSULIN ASPART
     Indication: Product used for unknown indication
     Dosage: 1 DOSAGE FORM, PRN (AS NECESSARY) (30 FLEXPEN 100 U/ML SUSPENSION FOR INJECTION IN A PRE-FILLED PEN,
     Route: 058
     Dates: start: 20210112
  8. ATORVASTATIN CALCIUM [Concomitant]
     Active Substance: ATORVASTATIN CALCIUM
     Indication: Product used for unknown indication
     Dosage: 20 MG, Q24H
     Route: 048
     Dates: start: 20210126

REACTIONS (2)
  - Lip oedema [Recovered/Resolved]
  - Dyspnoea [Recovered/Resolved]

NARRATIVE: CASE EVENT DATE: 20230326
